FAERS Safety Report 7549946-6 (Version None)
Quarter: 2011Q2

REPORT INFORMATION
  Report Type: 
  Country: None (occurrence: None)
  Receive Date: 20110615
  Receipt Date: 20110531
  Transmission Date: 20111010
  Serious: Yes (Other)
  Sender: FDA-Public Use
  Company Number: TW-WATSON-2011-08141

PATIENT
  Age: 42 Year
  Sex: Female

DRUGS (2)
  1. ACETAMINOPHEN [Suspect]
     Indication: HEADACHE
     Dosage: 500MG X 4 TABS, DAILY
  2. IBUPROFEN [Suspect]
     Indication: HEADACHE
     Dosage: 400 MG X 4 TABS DAILY

REACTIONS (4)
  - HEADACHE [None]
  - MIGRAINE [None]
  - OVERDOSE [None]
  - DRUG ABUSE [None]
